FAERS Safety Report 16172771 (Version 1)
Quarter: 2019Q2

REPORT INFORMATION
  Report Type: Spontaneous
  Country: US (occurrence: US)
  Receive Date: 20190409
  Receipt Date: 20190409
  Transmission Date: 20190711
  Serious: Yes (Other)
  Sender: FDA-Public Use
  Company Number: US-ROCHE-2298484

PATIENT

DRUGS (11)
  1. ATORVASTATIN CALCIUM. [Concomitant]
     Active Substance: ATORVASTATIN CALCIUM
  2. GLIMEPIRIDE. [Concomitant]
     Active Substance: GLIMEPIRIDE
  3. BUMETANIDE. [Concomitant]
     Active Substance: BUMETANIDE
  4. FLUCONAZOLE. [Concomitant]
     Active Substance: FLUCONAZOLE
  5. LEVOTHYROXIN [Concomitant]
     Active Substance: LEVOTHYROXINE
  6. ASPIRIN. [Concomitant]
     Active Substance: ASPIRIN
  7. COENZYME Q10 [Concomitant]
     Active Substance: UBIDECARENONE
  8. TRICOR [Concomitant]
     Active Substance: FENOFIBRATE
  9. LACTULOSE. [Concomitant]
     Active Substance: LACTULOSE
  10. ESBRIET [Suspect]
     Active Substance: PIRFENIDONE
     Indication: RESPIRATORY DISORDER
     Route: 048
     Dates: start: 201504
  11. FLOMAX [Concomitant]
     Active Substance: TAMSULOSIN HYDROCHLORIDE

REACTIONS (3)
  - Off label use [Unknown]
  - Renal impairment [Unknown]
  - Intentional product use issue [Unknown]
